FAERS Safety Report 14308104 (Version 2)
Quarter: 2018Q3

REPORT INFORMATION
  Report Type: Spontaneous
  Country: GB (occurrence: GB)
  Receive Date: 20171220
  Receipt Date: 20180821
  Transmission Date: 20181010
  Serious: Yes (Disabling)
  Sender: FDA-Public Use
  Company Number: GB-009507513-1712GBR008585

PATIENT
  Age: 19 Year
  Sex: Female
  Weight: 110 kg

DRUGS (1)
  1. MIRTAZAPINE. [Suspect]
     Active Substance: MIRTAZAPINE
     Indication: DEPRESSION SUICIDAL
     Dosage: UNK
     Route: 048
     Dates: start: 201608, end: 201702

REACTIONS (3)
  - Abnormal weight gain [Recovered/Resolved]
  - Hypothyroidism [Recovered/Resolved]
  - Fatigue [Recovered/Resolved]

NARRATIVE: CASE EVENT DATE: 201609
